FAERS Safety Report 5431783-X (Version None)
Quarter: 2007Q3

REPORT INFORMATION
  Report Type: 
  Country: None (occurrence: None)
  Receive Date: 20070731
  Receipt Date: 20070504
  Transmission Date: 20080115
  Serious: No
  Sender: FDA-Public Use
  Company Number: US200705001739

PATIENT
  Age: 73 Year
  Sex: Female

DRUGS (7)
  1. BYETTA [Suspect]
     Indication: TYPE 2 DIABETES MELLITUS
     Dosage: 5 UG, SUBCUTANEOUS
     Route: 058
     Dates: start: 20070429
  2. AMARYL [Concomitant]
  3. AVAPRO [Concomitant]
  4. ASPIRIN [Concomitant]
  5. PROZAC [Concomitant]
  6. XANAX [Concomitant]
  7. LIPITOR [Concomitant]

REACTIONS (3)
  - CONSTIPATION [None]
  - INJECTION SITE BRUISING [None]
  - WEIGHT INCREASED [None]
